FAERS Safety Report 8815036 (Version 2)
Quarter: 2012Q4

REPORT INFORMATION
  Report Type: 
  Country: US (occurrence: US)
  Receive Date: 20120928
  Receipt Date: 20121017
  Transmission Date: 20130627
  Serious: No
  Sender: FDA-Public Use
  Company Number: US-PFIZER INC-2012240060

PATIENT
  Sex: Female

DRUGS (2)
  1. LYRICA [Suspect]
     Dosage: 75 mg
  2. LYRICA [Suspect]
     Dosage: 150 mg

REACTIONS (3)
  - Feeling abnormal [Unknown]
  - Impaired driving ability [Unknown]
  - Drug intolerance [Unknown]
